FAERS Safety Report 9018387 (Version 3)
Quarter: 2013Q4

REPORT INFORMATION
  Report Type: Spontaneous
  Country: US (occurrence: US)
  Receive Date: 20130118
  Receipt Date: 20131024
  Transmission Date: 20140711
  Serious: No
  Sender: FDA-Public Use
  Company Number: US-PFIZER INC-2013023269

PATIENT
  Age: 60 Year
  Sex: Female
  Weight: 113 kg

DRUGS (14)
  1. LYRICA [Suspect]
     Indication: NEUROPATHY PERIPHERAL
     Dosage: 100 MG, 3X/DAY
     Route: 048
  2. LYRICA [Suspect]
     Indication: FIBROMYALGIA
     Dosage: 150 MG, 3X/DAY
     Route: 048
  3. SYNTHROID [Concomitant]
     Dosage: UNK
  4. LANTUS [Concomitant]
     Dosage: UNK
  5. NEXIUM [Concomitant]
     Dosage: UNK
  6. PERCOCET [Concomitant]
     Dosage: UNK
  7. PRAVASTATIN [Concomitant]
     Dosage: UNK
  8. REQUIP [Concomitant]
     Indication: RESTLESS LEGS SYNDROME
     Dosage: UNK
  9. GLYSET [Concomitant]
     Dosage: UNK
  10. METFORMIN [Concomitant]
     Dosage: UNK
  11. HUMALOG [Concomitant]
     Dosage: UNK
  12. LASIX [Concomitant]
     Dosage: UNK
  13. DIOVAN [Concomitant]
     Dosage: UNK
  14. ASA [Concomitant]
     Dosage: UNK

REACTIONS (1)
  - Vision blurred [Not Recovered/Not Resolved]
